FAERS Safety Report 7941134-4 (Version None)
Quarter: 2011Q4

REPORT INFORMATION
  Report Type: 
  Country: None (occurrence: None)
  Receive Date: 20111128
  Receipt Date: 20111121
  Transmission Date: 20120403
  Serious: Yes (Hospitalization, Other)
  Sender: FDA-Public Use
  Company Number: US-BAYER-2011-089725

PATIENT
  Age: 79 Year
  Sex: Female
  Weight: 55.29 kg

DRUGS (32)
  1. SARGRAMOSTIM [Suspect]
     Indication: MALIGNANT MELANOMA
     Dosage: 250 ?G, QD
     Route: 058
     Dates: start: 20110901, end: 20110914
  2. SARGRAMOSTIM [Suspect]
     Dosage: 250 ?G, QD
     Route: 058
     Dates: start: 20110630, end: 20110713
  3. MDX-010 [Suspect]
     Dosage: 10 MG/KG, ONCE
     Route: 042
     Dates: start: 20110630, end: 20110630
  4. MULTI-VITAMIN [Concomitant]
     Dosage: UNK UNK, QD
  5. FIBER [Concomitant]
     Dosage: UNK UNK, BID
  6. VITAMIN B-12 [Concomitant]
     Dosage: 2500 ?G, UNK
  7. SARGRAMOSTIM [Suspect]
     Dosage: 250 ?G, QD
     Route: 058
     Dates: start: 20110811, end: 20110824
  8. SARGRAMOSTIM [Suspect]
     Dosage: 250 ?G, QD
     Route: 058
     Dates: start: 20110721, end: 20110803
  9. MDX-010 [Suspect]
     Dosage: 10 MG/KG, ONCE
     Route: 042
     Dates: start: 20110811, end: 20110811
  10. PREDNISONE TAB [Concomitant]
     Indication: RASH ERYTHEMATOUS
     Dosage: TAPERING DOSE
  11. HYDROCHLOROTHIAZIDE [Concomitant]
     Dosage: 25 MG, QD
  12. SERTRALINE HYDROCHLORIDE [Concomitant]
     Indication: ANXIETY
     Dosage: 50 MG, QD
     Route: 048
     Dates: start: 20090101
  13. ZYRTEC [Concomitant]
  14. ZOLOFT [Concomitant]
  15. KLOR-CON [Concomitant]
     Dosage: 20 MEQ, QD
  16. FEXOFENADINE [Concomitant]
     Indication: MENIERE'S DISEASE
     Dosage: 180 MG, QD
     Route: 048
     Dates: start: 20090101
  17. TRIAMTERENE [Concomitant]
     Indication: MENIERE'S DISEASE
     Dosage: 37.5 MG, QD
     Dates: start: 20090101
  18. CRANBERRY [Concomitant]
     Dosage: 2000 1XDAILY
  19. ZOLOFT [Concomitant]
  20. SODIUM PHOSPHATES [Concomitant]
  21. MDX-010 [Suspect]
     Indication: NASOPHARYNGEAL CANCER
     Dosage: 10 MG/KG, ONCE
     Route: 042
     Dates: start: 20110901, end: 20110901
  22. PERCOCET [Concomitant]
     Dosage: 5 - 325 MG
     Dates: start: 20000101
  23. ZINC [Concomitant]
     Dosage: 25 MG, QD
  24. VITAMIN D [Concomitant]
     Dosage: 1000 QD
  25. VITAMIN A [Concomitant]
     Dosage: 3 MG, QD
  26. MDX-010 [Suspect]
     Dosage: 10 MG/KG, ONCE
     Route: 042
     Dates: start: 20110721, end: 20110721
  27. PREDNISONE TAB [Concomitant]
     Indication: PRURITUS
  28. SIMVASTATIN [Concomitant]
     Indication: HYPERCHOLESTEROLAEMIA
     Dosage: 40 MG, UNK
     Dates: start: 20000101
  29. DIAZEPAM [Concomitant]
     Indication: MENIERE'S DISEASE
     Dosage: 5 MG, TID PRN
  30. VITAMIN E [Concomitant]
     Dosage: UNK UNK, QD
  31. CALCIUM [Concomitant]
     Dosage: 1200 MG, QD
  32. LEVOTHYROXINE SODIUM [Concomitant]
     Dosage: 0.025 MG, UNK

REACTIONS (8)
  - HYPONATRAEMIA [None]
  - DEHYDRATION [None]
  - MUSCULAR WEAKNESS [None]
  - PYREXIA [None]
  - FALL [None]
  - ABDOMINAL DISTENSION [None]
  - DIARRHOEA [None]
  - ENTEROCOLITIS INFECTIOUS [None]
